FAERS Safety Report 7491238-8 (Version None)
Quarter: 2011Q2

REPORT INFORMATION
  Report Type: 
  Country: None (occurrence: None)
  Receive Date: 20110519
  Receipt Date: 20110511
  Transmission Date: 20111010
  Serious: Yes (Other)
  Sender: FDA-Public Use
  Company Number: A0816998A

PATIENT
  Sex: Male

DRUGS (3)
  1. FLOVENT [Suspect]
     Indication: ASTHMA
     Dosage: 1PUFF TWICE PER DAY
     Route: 055
  2. CITANEST [Suspect]
     Route: 065
  3. ADVAIR DISKUS 100/50 [Suspect]
     Indication: ASTHMA
     Route: 055

REACTIONS (9)
  - HYPOGLYCAEMIA [None]
  - HYPOAESTHESIA [None]
  - TREMOR [None]
  - RASH PRURITIC [None]
  - BLOOD CORTICOTROPHIN INCREASED [None]
  - MALAISE [None]
  - FEELING ABNORMAL [None]
  - LIP OEDEMA [None]
  - BLOOD CORTISOL INCREASED [None]
